FAERS Safety Report 4910834-2 (Version None)
Quarter: 2006Q1

REPORT INFORMATION
  Report Type: 
  Country: None (occurrence: None)
  Receive Date: 20060214
  Receipt Date: 20060213
  Transmission Date: 20060701
  Serious: Yes (Other)
  Sender: FDA-Public Use
  Company Number: CA-GLAXOSMITHKLINE-A0593517A

PATIENT
  Age: 52 Year
  Sex: Female

DRUGS (2)
  1. ZYBAN [Suspect]
     Indication: SMOKING CESSATION THERAPY
     Dosage: 300MG PER DAY
     Route: 048
  2. NO CONCURRENT MEDICATIONS [Concomitant]

REACTIONS (3)
  - DEAFNESS UNILATERAL [None]
  - NASAL CONGESTION [None]
  - TINNITUS [None]
